FAERS Safety Report 19865531 (Version 1)
Quarter: 2021Q3

REPORT INFORMATION
  Report Type: Spontaneous
  Country: US (occurrence: US)
  Receive Date: 20210922
  Receipt Date: 20210922
  Transmission Date: 20211014
  Serious: Yes (Hospitalization, Other)
  Sender: FDA-Public Use
  Company Number: US-CELLTRION INC.-2021US012686

PATIENT

DRUGS (4)
  1. TRASTUZUMAB. [Suspect]
     Active Substance: TRASTUZUMAB
     Indication: PRODUCT USED FOR UNKNOWN INDICATION
  2. PERTUZUMAB. [Suspect]
     Active Substance: PERTUZUMAB
     Indication: PRODUCT USED FOR UNKNOWN INDICATION
  3. GOSERELIN [Suspect]
     Active Substance: GOSERELIN
     Indication: PRODUCT USED FOR UNKNOWN INDICATION
  4. EXEMESTANE. [Suspect]
     Active Substance: EXEMESTANE
     Indication: PRODUCT USED FOR UNKNOWN INDICATION

REACTIONS (9)
  - Eastern Cooperative Oncology Group performance status worsened [Unknown]
  - Pain in extremity [Unknown]
  - Hyperbilirubinaemia [Recovered/Resolved]
  - Anxiety [Unknown]
  - Cholestasis [Unknown]
  - Headache [Unknown]
  - Hepatic cirrhosis [Unknown]
  - Abdominal pain upper [Unknown]
  - Cancer pain [Unknown]

NARRATIVE: CASE EVENT DATE: 202001
